FAERS Safety Report 13425939 (Version 1)
Quarter: 2017Q2

REPORT INFORMATION
  Report Type: Spontaneous
  Country: US (occurrence: US)
  Receive Date: 20170410
  Receipt Date: 20170410
  Transmission Date: 20170830
  Serious: Yes (Life-Threatening, Disabling)
  Sender: FDA-Public Use
  Company Number: None

PATIENT
  Age: 72 Year
  Sex: Female
  Weight: 63 kg

DRUGS (10)
  1. XARELTO [Suspect]
     Active Substance: RIVAROXABAN
     Indication: THROMBOSIS PROPHYLAXIS
     Dosage: ?          QUANTITY:1 TABLET(S);?
     Route: 048
     Dates: start: 20161020
  2. VESICARE [Concomitant]
     Active Substance: SOLIFENACIN SUCCINATE
  3. ZETIA [Concomitant]
     Active Substance: EZETIMIBE
  4. SYNTHROID [Concomitant]
     Active Substance: LEVOTHYROXINE SODIUM
  5. XARELTO [Concomitant]
     Active Substance: RIVAROXABAN
  6. LORAZEPAM. [Concomitant]
     Active Substance: LORAZEPAM
  7. MIRTAZAPINE. [Concomitant]
     Active Substance: MIRTAZAPINE
  8. ATENOLOL. [Concomitant]
     Active Substance: ATENOLOL
  9. BUPROPION SR [Concomitant]
     Active Substance: BUPROPION HYDROCHLORIDE
  10. LOSARTAN. [Concomitant]
     Active Substance: LOSARTAN

REACTIONS (3)
  - Confusional state [None]
  - Memory impairment [None]
  - Hallucination [None]

NARRATIVE: CASE EVENT DATE: 20161020
